FAERS Safety Report 11593071 (Version 2)
Quarter: 2015Q4

REPORT INFORMATION
  Report Type: Spontaneous
  Country: US (occurrence: US)
  Receive Date: 20151005
  Receipt Date: 20151012
  Transmission Date: 20160304
  Serious: Yes (Other)
  Sender: FDA-Public Use
  Company Number: US-PFIZER INC-2015328961

PATIENT
  Age: 46 Year
  Sex: Female
  Weight: 96 kg

DRUGS (13)
  1. LYRICA [Suspect]
     Active Substance: PREGABALIN
     Indication: FIBROMYALGIA
     Dosage: 200 MG, DAILY
  2. LYRICA [Suspect]
     Active Substance: PREGABALIN
     Indication: NEUROPATHY PERIPHERAL
     Dosage: 400 MG, DAILY
  3. FONDAPARINUX SODIUM. [Concomitant]
     Active Substance: FONDAPARINUX SODIUM
     Indication: FACTOR V LEIDEN MUTATION
     Dosage: 7.5 MG, 1X/DAY
     Dates: start: 2009
  4. LYRICA [Suspect]
     Active Substance: PREGABALIN
     Indication: AUTOIMMUNE THYROIDITIS
  5. DEXAMETHASONE. [Concomitant]
     Active Substance: DEXAMETHASONE
     Indication: CENTRAL NERVOUS SYSTEM LESION
     Dosage: UNK
  6. BENADRYL [Concomitant]
     Active Substance: DIPHENHYDRAMINE HYDROCHLORIDE
     Indication: SINUS DISORDER
     Dosage: 25 MG, AS NEEDED
  7. DEXAMETHASONE. [Concomitant]
     Active Substance: DEXAMETHASONE
     Indication: AUTONOMIC NERVOUS SYSTEM IMBALANCE
  8. BENADRYL [Concomitant]
     Active Substance: DIPHENHYDRAMINE HYDROCHLORIDE
     Indication: MIGRAINE
  9. ULTRAM [Concomitant]
     Active Substance: TRAMADOL HYDROCHLORIDE
     Indication: PAIN
     Dosage: 50 MG, AS NEEDED ON REALLY ACTIVE PAIN DAYS
  10. TUMS SMOOTHIE [Concomitant]
     Indication: DYSPEPSIA
     Dosage: UNK
  11. NORCO [Concomitant]
     Active Substance: ACETAMINOPHEN\HYDROCODONE BITARTRATE
     Indication: PAIN
     Dosage: 5/325, 3X/DAY USUALLY EVERY DAY
  12. LYRICA [Suspect]
     Active Substance: PREGABALIN
     Indication: AUTONOMIC NEUROPATHY
     Dosage: 50 MG, DAILY
  13. TYLENOL [Concomitant]
     Active Substance: ACETAMINOPHEN
     Dosage: 325 MG, UNK (DOES NOT TAKE THAT OFTEN BECAUSE SHE ALSO TAKE NORCO)

REACTIONS (15)
  - Impaired driving ability [Unknown]
  - Euphoric mood [Unknown]
  - Central nervous system lesion [Unknown]
  - Dizziness [Unknown]
  - Drug ineffective [Recovered/Resolved]
  - Pulmonary embolism [Unknown]
  - Visual acuity reduced [Unknown]
  - Blood pressure fluctuation [Unknown]
  - Loss of consciousness [Recovered/Resolved]
  - Renal cancer [Unknown]
  - Hypoaesthesia [Recovered/Resolved]
  - Lethargy [Recovered/Resolved]
  - Bradycardia [Unknown]
  - Vision blurred [Not Recovered/Not Resolved]
  - Tachycardia [Unknown]

NARRATIVE: CASE EVENT DATE: 2008
